FAERS Safety Report 17449591 (Version 2)
Quarter: 2020Q2

REPORT INFORMATION
  Report Type: Spontaneous
  Country: US (occurrence: US)
  Receive Date: 20200224
  Receipt Date: 20200406
  Transmission Date: 20200713
  Serious: Yes (Hospitalization, Other)
  Sender: FDA-Public Use
  Company Number: US-ASTRAZENECA-2020SE25447

PATIENT
  Age: 383 Day
  Sex: Female
  Weight: 5.3 kg

DRUGS (13)
  1. SYNAGIS [Suspect]
     Active Substance: PALIVIZUMAB
     Indication: ANTIVIRAL PROPHYLAXIS
     Route: 030
     Dates: start: 20200109
  2. POLYETHYLENE GLYCOL [Concomitant]
     Active Substance: POLYETHYLENE GLYCOLS
     Dosage: 3350 NF, 3GMS (1/2 TEASPOON) MIXED INTO 2 OUNCES OF FORMULA ONCE DAILY
  3. ACETAMINOPHEN. [Concomitant]
     Active Substance: ACETAMINOPHEN
     Indication: PYREXIA
     Dosage: 160MG/5ML, 1.25ML EVERY 4 TO 6 HOURS AS NEEDED
  4. SYNAGIS [Suspect]
     Active Substance: PALIVIZUMAB
     Indication: ANTIVIRAL PROPHYLAXIS
     Route: 030
     Dates: start: 20191205
  5. INFANTS IBUPROFEN [Concomitant]
     Active Substance: IBUPROFEN
     Dosage: 50MG/1.25ML, 1.25ML EVERY 6 HOURS AS NEEDED
  6. TRIAMCINOLONE ACETONIDE. [Concomitant]
     Active Substance: TRIAMCINOLONE ACETONIDE
     Dosage: APPLY SPARINGLY TO AFFECTED AREA TWICE A DAY MIXED WITH AQUAPHOR
  7. FLUTICASONE PROPIONATE. [Concomitant]
     Active Substance: FLUTICASONE PROPIONATE
  8. ACETAMINOPHEN. [Concomitant]
     Active Substance: ACETAMINOPHEN
     Indication: PAIN
     Dosage: 160MG/5ML, 1.25ML EVERY 4 TO 6 HOURS AS NEEDED
  9. NEOCATE INFANT DHA/A [Concomitant]
     Dosage: MIX 29 SCOOPS IN 630ML DAILY. 32ML/HR VIA GTUBE FOR 18 HOURS THEN 30ML BY MOUTH AT 12, 2 AND 4 PM
  10. BENADRYL ALLERGY [Concomitant]
     Active Substance: DIPHENHYDRAMINE HYDROCHLORIDE
     Dosage: 12.5MG/5ML, 0.3ML BY MOUTH EVERY EIGHT HOURS AS NEEDED
  11. FIRST-OMEPRAZOLE [Concomitant]
     Dosage: 2.5ML BY MOUTH BEFORE BREAKFAST
     Route: 048
  12. CETIRIZINE HCL [Concomitant]
     Active Substance: CETIRIZINE HYDROCHLORIDE
     Dosage: 5MG/5ML, 2.5ML BY MOUTH EVERY NIGHT
     Route: 048
  13. ALBUTEROL SULFATE. [Concomitant]
     Active Substance: ALBUTEROL SULFATE
     Dosage: 2.5MG/3, 1 UNIT EVERY 4 HOURS AS NEEDED

REACTIONS (2)
  - Cellulitis [Unknown]
  - Streptococcal sepsis [Recovered/Resolved]

NARRATIVE: CASE EVENT DATE: 20200201
